FAERS Safety Report 10927552 (Version 2)
Quarter: 2015Q2

REPORT INFORMATION
  Report Type: Spontaneous
  Country: US (occurrence: US)
  Receive Date: 20150318
  Receipt Date: 20150422
  Transmission Date: 20150821
  Serious: No
  Sender: FDA-Public Use
  Company Number: US-009507513-1503USA007841

PATIENT
  Age: 51 Year
  Sex: Male
  Weight: 89.8 kg

DRUGS (1)
  1. BELSOMRA [Suspect]
     Active Substance: SUVOREXANT
     Indication: INSOMNIA
     Dosage: 10 MG/ONE TABLET, ONCE DAILY
     Route: 048
     Dates: start: 20150302, end: 20150303

REACTIONS (2)
  - Drug ineffective [Recovered/Resolved]
  - Agitation [Unknown]

NARRATIVE: CASE EVENT DATE: 20150302
